FAERS Safety Report 5442625-0 (Version None)
Quarter: 2007Q3

REPORT INFORMATION
  Report Type: 
  Country: None (occurrence: None)
  Receive Date: 20070904
  Receipt Date: 20070824
  Transmission Date: 20080115
  Serious: Yes (Hospitalization)
  Sender: FDA-Public Use
  Company Number: DE-JNJFOC-20070800267

PATIENT
  Sex: Female

DRUGS (7)
  1. REMICADE [Suspect]
     Route: 042
  2. REMICADE [Suspect]
     Route: 042
  3. REMICADE [Suspect]
     Indication: CROHN'S DISEASE
     Route: 042
  4. AZATHIOPRINE [Concomitant]
     Indication: CROHN'S DISEASE
     Route: 048
  5. MESALAZINE [Concomitant]
     Indication: CROHN'S DISEASE
     Route: 048
  6. METHYLPREDNISOLONE 16MG TAB [Concomitant]
     Indication: CROHN'S DISEASE
     Route: 048
  7. OMEPRAZOLE [Concomitant]
     Indication: ANTACID THERAPY
     Route: 048

REACTIONS (2)
  - COLONIC STENOSIS [None]
  - RETROPERITONEAL ABSCESS [None]
